FAERS Safety Report 23692203 (Version 1)
Quarter: 2024Q1

REPORT INFORMATION
  Report Type: Spontaneous
  Country: US (occurrence: None)
  Receive Date: 20240329
  Receipt Date: 20240329
  Transmission Date: 20240410
  Serious: Yes (Life-Threatening, Hospitalization, Disabling)
  Sender: FDA-Public Use
  Company Number: None

PATIENT
  Age: 49 Year
  Sex: Male
  Weight: 101.25 kg

DRUGS (11)
  1. DUPIXENT [Suspect]
     Active Substance: DUPILUMAB
     Indication: Eczema
     Dosage: OTHER QUANTITY : 2 INJECTION(S);?OTHER FREQUENCY : STARTER DOSE;?
     Route: 058
     Dates: start: 20240320
  2. AMLODIPINE [Concomitant]
  3. Ibesartan/Hctz [Concomitant]
  4. CARVEDILOL [Concomitant]
  5. ELIQUIS [Concomitant]
     Active Substance: APIXABAN
  6. TRAMADOL [Concomitant]
  7. POTASSIUM [Concomitant]
  8. PROTONIX [Concomitant]
     Active Substance: PANTOPRAZOLE SODIUM
  9. TYLENOL [Concomitant]
  10. HERBALS\SAW PALMETTO [Concomitant]
     Active Substance: HERBALS\SAW PALMETTO
  11. PREVACID [Concomitant]
     Active Substance: LANSOPRAZOLE

REACTIONS (12)
  - Pain in extremity [None]
  - Pain in extremity [None]
  - Pyrexia [None]
  - Chest pain [None]
  - Thrombosis [None]
  - Lymphadenopathy [None]
  - Thrombosis prophylaxis [None]
  - Pleural effusion [None]
  - Anaemia [None]
  - Blood potassium decreased [None]
  - Vitamin B12 decreased [None]
  - Gait inability [None]

NARRATIVE: CASE EVENT DATE: 20240321
